FAERS Safety Report 5187980-4 (Version None)
Quarter: 2006Q4

REPORT INFORMATION
  Report Type: 
  Country: None (occurrence: None)
  Receive Date: 20061221
  Receipt Date: 20061211
  Transmission Date: 20070319
  Serious: Yes (Hospitalization)
  Sender: FDA-Public Use
  Company Number: JP-BAYER-200616285GDS

PATIENT
  Age: 65 Year
  Sex: Male

DRUGS (6)
  1. BUFFERIN [Suspect]
     Indication: ANTICOAGULANT THERAPY
     Route: 048
     Dates: start: 20011225
  2. BUFFERIN [Suspect]
     Route: 048
  3. TICLOPIDINE [Suspect]
     Indication: ANTICOAGULANT THERAPY
     Route: 048
     Dates: start: 20011225
  4. TICLOPIDINE [Suspect]
     Route: 048
  5. WARFARIN SODIUM [Concomitant]
     Indication: ANTICOAGULANT THERAPY
     Route: 048
  6. WARFARIN SODIUM [Concomitant]
     Route: 048
     Dates: start: 20011225, end: 20020106

REACTIONS (5)
  - CYANOSIS [None]
  - DUODENAL ULCER HAEMORRHAGE [None]
  - FAT EMBOLISM [None]
  - PYREXIA [None]
  - RENAL FAILURE ACUTE [None]
